FAERS Safety Report 7877201-3 (Version None)
Quarter: 2011Q4

REPORT INFORMATION
  Report Type: 
  Country: None (occurrence: None)
  Receive Date: 20111031
  Receipt Date: 20111026
  Transmission Date: 20120403
  Serious: Yes (Death)
  Sender: FDA-Public Use
  Company Number: JP-ROCHE-1008063

PATIENT
  Sex: Male

DRUGS (6)
  1. ETOPOSIDE [Concomitant]
     Indication: LYMPHOMA
  2. DOXORUBICIN HCL [Concomitant]
     Indication: LYMPHOMA
  3. CYCLOPHOSPHAMIDE [Concomitant]
     Indication: LYMPHOMA
  4. MABTHERA [Suspect]
     Indication: LYMPHOMA
     Route: 042
     Dates: start: 20110901
  5. PREDNISOLONE [Concomitant]
     Indication: LYMPHOMA
  6. VINCRISTINE [Concomitant]
     Indication: LYMPHOMA

REACTIONS (1)
  - CARDIAC ARREST [None]
